FAERS Safety Report 4881575-5 (Version None)
Quarter: 2005Q4

REPORT INFORMATION
  Report Type: 
  Country: None (occurrence: None)
  Receive Date: 20051209
  Receipt Date: 20050815
  Transmission Date: 20060501
  Serious: Yes (Other)
  Sender: FDA-Public Use
  Company Number: USA-2005-0021013

PATIENT
  Age: 35 Year
  Sex: Male

DRUGS (3)
  1. OXYCONTIN [Suspect]
  2. ALCOHOL [Concomitant]
  3. MARIJUANA [Concomitant]

REACTIONS (8)
  - DISORIENTATION [None]
  - DIZZINESS [None]
  - DRUG ABUSER [None]
  - DYSARTHRIA [None]
  - ENERGY INCREASED [None]
  - EUPHORIC MOOD [None]
  - HYPERHIDROSIS [None]
  - MEMORY IMPAIRMENT [None]
